FAERS Safety Report 22536106 (Version 1)
Quarter: 2023Q2

REPORT INFORMATION
  Report Type: Spontaneous
  Country: US (occurrence: US)
  Receive Date: 20230608
  Receipt Date: 20230608
  Transmission Date: 20230722
  Serious: No
  Sender: FDA-Public Use
  Company Number: US-SA-2023SA174329

PATIENT
  Sex: Male
  Weight: 68.481 kg

DRUGS (1)
  1. FABRAZYME [Suspect]
     Active Substance: AGALSIDASE BETA
     Dosage: 80 MG, QOW (IN 100 ML NORMAL SALINE (TOTAL VOLUME) OVER 3 HOURS VIA INFUSION PUMP)
     Route: 042
     Dates: start: 202109

REACTIONS (1)
  - Weight decreased [Unknown]

NARRATIVE: CASE EVENT DATE: 20230215
